FAERS Safety Report 9013755 (Version 1)
Quarter: 2012Q4

REPORT INFORMATION
  Report Type: Spontaneous
  Country: DE (occurrence: None)
  Receive Date: 20121231
  Receipt Date: 20121231
  Transmission Date: 20130627
  Serious: Yes (Other)
  Sender: FDA-Public Use
  Company Number: NGX_01516_2012

PATIENT
  Age: 55 Year
  Sex: Female
  Weight: 64 kg

DRUGS (2)
  1. QUTENZA (CAPSAICIN) PATCH 8 % [Suspect]
     Indication: NEURALGIA
     Dosage: [2 patches, applied to right hand]
     Route: 061
     Dates: start: 20121204, end: 20121204
  2. LIDOCAIN /00033401/ [Concomitant]

REACTIONS (4)
  - Application site pain [None]
  - Application site swelling [None]
  - Hypersensitivity [None]
  - Application site erythema [None]
